FAERS Safety Report 7732998-8 (Version None)
Quarter: 2011Q3

REPORT INFORMATION
  Report Type: 
  Country: None (occurrence: None)
  Receive Date: 20110902
  Receipt Date: 20110902
  Transmission Date: 20111222
  Serious: No
  Sender: FDA-Public Use
  Company Number: None

PATIENT
  Sex: Female
  Weight: 90.9 kg

DRUGS (1)
  1. VIVELLE [Suspect]
     Indication: MENOPAUSAL SYMPTOMS
     Dosage: .05 MG BIWEEKLY TRANSDERMAL
     Route: 062
     Dates: start: 20110729, end: 20110813

REACTIONS (1)
  - MYALGIA [None]
